FAERS Safety Report 9537139 (Version 1)
Quarter: 2013Q3

REPORT INFORMATION
  Report Type: Spontaneous
  Country: US (occurrence: US)
  Receive Date: 20130919
  Receipt Date: 20130919
  Transmission Date: 20140515
  Serious: No
  Sender: FDA-Public Use
  Company Number: US-TEVA-433555USA

PATIENT
  Age: 42 Year
  Sex: Female
  Weight: 77.18 kg

DRUGS (2)
  1. PLAN B ONE-STEP [Suspect]
     Indication: POST COITAL CONTRACEPTION
     Dosage: 1.5 MILLIGRAM DAILY;
     Route: 048
     Dates: start: 20130829, end: 20130829
  2. IBUPROFEN [Concomitant]
     Indication: BACK PAIN

REACTIONS (3)
  - Pregnancy test positive [Unknown]
  - Menstruation irregular [Recovered/Resolved]
  - Pregnancy test negative [Unknown]
